FAERS Safety Report 6166377-4 (Version None)
Quarter: 2009Q2

REPORT INFORMATION
  Report Type: 
  Country: None (occurrence: None)
  Receive Date: 20090424
  Receipt Date: 20080401
  Transmission Date: 20091009
  Serious: No
  Sender: FDA-Public Use
  Company Number: A0718658A

PATIENT
  Age: 51 Year
  Sex: Female

DRUGS (3)
  1. DEXTROAMPHETAMINE [Suspect]
     Indication: DEPRESSION
     Dosage: 2.5MG PER DAY
     Route: 048
     Dates: start: 20080301, end: 20080301
  2. CELEXA [Concomitant]
  3. AMBIEN [Concomitant]

REACTIONS (1)
  - DRUG INEFFECTIVE [None]
